FAERS Safety Report 22143164 (Version 1)
Quarter: 2023Q1

REPORT INFORMATION
  Report Type: Spontaneous
  Country: US (occurrence: US)
  Receive Date: 20230327
  Receipt Date: 20230327
  Transmission Date: 20230418
  Serious: Yes (Hospitalization, Other)
  Sender: FDA-Public Use
  Company Number: US-MEDEXUS PHARMA, INC.-2023MED00117

PATIENT
  Sex: Female

DRUGS (9)
  1. RASUVO [Suspect]
     Active Substance: METHOTREXATE SODIUM
     Indication: Psoriatic arthropathy
     Dosage: 15 MG, 1X/WEEK
     Route: 030
     Dates: end: 202301
  2. METHOTREXATE [Suspect]
     Active Substance: METHOTREXATE
     Dosage: UNK
  3. METHOTREXATE [Suspect]
     Active Substance: METHOTREXATE
     Dosage: UNK
     Dates: end: 2022
  4. UNSPECIFIED 38 DIFFERENT MEDICATIONS [Concomitant]
  5. UNSPECIFIED INGREDIENT [Concomitant]
     Active Substance: UNSPECIFIED INGREDIENT
  6. LEVOMEFOLIC ACID [Concomitant]
     Active Substance: LEVOMEFOLIC ACID
  7. DECADRON [Concomitant]
     Active Substance: DEXAMETHASONE
     Dosage: ^ON NORMAL DAYS^
  8. UNSPECIFIED INGREDIENT [Concomitant]
     Active Substance: UNSPECIFIED INGREDIENT
  9. UNSPECIFIED INGREDIENT [Concomitant]
     Active Substance: UNSPECIFIED INGREDIENT

REACTIONS (12)
  - Kidney infection [Not Recovered/Not Resolved]
  - Klebsiella infection [Not Recovered/Not Resolved]
  - Escherichia infection [Not Recovered/Not Resolved]
  - Hip fracture [Unknown]
  - Hypertension [Unknown]
  - Pulmonary embolism [Unknown]
  - Memory impairment [Not Recovered/Not Resolved]
  - Bone contusion [Unknown]
  - Bone marrow oedema [Unknown]
  - Bone swelling [Unknown]
  - Complication associated with device [Recovered/Resolved]
  - Off label use [Recovered/Resolved]

NARRATIVE: CASE EVENT DATE: 20220101
